FAERS Safety Report 15763048 (Version 1)
Quarter: 2018Q4

REPORT INFORMATION
  Report Type: Report from Study
  Country: None (occurrence: RO)
  Receive Date: 20181226
  Receipt Date: 20181226
  Transmission Date: 20190205
  Serious: Yes (Hospitalization, Other)
  Sender: FDA-Public Use
  Company Number: RO-ABBVIE-18K-135-2602618-00

PATIENT
  Age: 55 Year
  Sex: Male

DRUGS (15)
  1. COAXIL [Concomitant]
     Active Substance: TIANEPTINE SODIUM
     Indication: MIXED DEMENTIA
     Route: 048
  2. ZOMEN [Concomitant]
     Indication: CEREBROVASCULAR ACCIDENT
     Route: 048
  3. MILURIT [Concomitant]
     Active Substance: ALLOPURINOL
     Indication: CEREBROVASCULAR ACCIDENT
     Route: 048
  4. BISOGAMMA [Concomitant]
     Active Substance: BISOPROLOL FUMARATE
     Indication: CEREBROVASCULAR ACCIDENT
     Route: 048
  5. DERMOVATE [Concomitant]
     Active Substance: CLOBETASOL
     Indication: PSORIASIS
     Route: 048
  6. OMEZ [Concomitant]
     Active Substance: OMEPRAZOLE
     Indication: ULCER
     Route: 048
  7. RIDAXIN [Concomitant]
     Indication: MIXED DEMENTIA
     Route: 048
  8. MEMANTINA [Concomitant]
     Active Substance: MEMANTINE HYDROCHLORIDE
     Indication: MIXED DEMENTIA
     Route: 048
  9. CARBAMAZEPINA [Concomitant]
     Active Substance: CARBAMAZEPINE
     Indication: CEREBROVASCULAR ACCIDENT
     Route: 048
  10. ASPIRIN CARDIO [Concomitant]
     Active Substance: ASPIRIN
     Indication: CEREBROVASCULAR ACCIDENT
     Route: 048
  11. INDAPAMID [Concomitant]
     Active Substance: INDAPAMIDE
     Indication: CEREBROVASCULAR ACCIDENT
     Route: 048
  12. SORTIS [Concomitant]
     Active Substance: ATORVASTATIN
     Indication: CEREBROVASCULAR ACCIDENT
     Route: 048
  13. SERMION [Concomitant]
     Active Substance: NICERGOLINE
     Indication: CEREBROVASCULAR ACCIDENT
     Route: 048
  14. HUMIRA [Suspect]
     Active Substance: ADALIMUMAB
     Indication: PSORIASIS
     Route: 058
     Dates: start: 20170715
  15. OLICARD [Concomitant]
     Active Substance: ISOSORBIDE MONONITRATE
     Indication: CEREBROVASCULAR ACCIDENT
     Route: 048

REACTIONS (2)
  - Stroke in evolution [Recovered/Resolved]
  - Paraesthesia [Recovered/Resolved]

NARRATIVE: CASE EVENT DATE: 2017
